FAERS Safety Report 17969676 (Version 2)
Quarter: 2020Q4

REPORT INFORMATION
  Report Type: Report from Study
  Country: CA (occurrence: CA)
  Receive Date: 20200701
  Receipt Date: 20201130
  Transmission Date: 20210113
  Serious: Yes (Hospitalization, Other)
  Sender: FDA-Public Use
  Company Number: CA-OTSUKA-2018_035613

PATIENT
  Age: 27 Year
  Sex: Female

DRUGS (1)
  1. ARIPIPRAZOLE. [Suspect]
     Active Substance: ARIPIPRAZOLE
     Indication: PRODUCT USED FOR UNKNOWN INDICATION
     Dosage: 300 MG, Q4 WEEKS
     Route: 030
     Dates: start: 20180803

REACTIONS (4)
  - Prescribed underdose [Unknown]
  - Hepatic steatosis [Recovered/Resolved]
  - Insurance issue [Unknown]
  - Haematemesis [Unknown]

NARRATIVE: CASE EVENT DATE: 20200611
